FAERS Safety Report 6756557-9 (Version None)
Quarter: 2010Q2

REPORT INFORMATION
  Report Type: 
  Country: None (occurrence: None)
  Receive Date: 20100604
  Receipt Date: 20100302
  Transmission Date: 20101027
  Serious: No
  Sender: FDA-Public Use
  Company Number: A0842863A

PATIENT
  Age: 24 Year
  Sex: Female
  Weight: 51.8 kg

DRUGS (1)
  1. LAMICTAL [Suspect]
     Indication: DRUG USE FOR UNKNOWN INDICATION
     Dosage: 200MG UNKNOWN
     Route: 065

REACTIONS (1)
  - NAUSEA [None]
